FAERS Safety Report 6283375-0 (Version None)
Quarter: 2009Q3

REPORT INFORMATION
  Report Type: 
  Country: None (occurrence: None)
  Receive Date: 20090724
  Receipt Date: 20090407
  Transmission Date: 20100115
  Serious: Yes (Hospitalization)
  Sender: FDA-Public Use
  Company Number: US-ALEXION-A200900129

PATIENT
  Sex: Male
  Weight: 76.19 kg

DRUGS (16)
  1. SOLIRIS [Suspect]
     Indication: PAROXYSMAL NOCTURNAL HAEMOGLOBINURIA
     Dosage: UNK
     Dates: start: 20071221, end: 20081003
  2. SOLIRIS [Suspect]
     Dosage: UNK
     Dates: start: 20081006, end: 20090223
  3. SOLIRIS [Suspect]
     Dosage: UNK
     Dates: start: 20090216
  4. SOLIRIS [Suspect]
     Dosage: 600 MG, QWK X4
     Route: 042
     Dates: start: 20090305, end: 20090323
  5. SOLIRIS [Suspect]
     Dosage: UNK
  6. OXYCONTIN [Concomitant]
     Indication: PAIN
     Dosage: 40 MG, Q12H
  7. OXYCONTIN [Concomitant]
     Dosage: 20 MG, BID
     Route: 048
     Dates: start: 20090305
  8. LOVENOX [Concomitant]
     Dosage: 80 MG, Q12H
     Route: 058
     Dates: start: 20090302
  9. ATIVAN [Concomitant]
     Indication: NAUSEA
     Dosage: 1 MG, TID PRN
     Route: 048
     Dates: start: 20090116
  10. SENNA-S                            /01035001/ [Concomitant]
     Dosage: 1 UNK, BID
     Route: 048
     Dates: start: 20071112
  11. ZOFRAN [Concomitant]
     Dosage: 8 MG, BID
     Route: 048
     Dates: start: 20090317
  12. FOLIC ACID [Concomitant]
     Dosage: 1 MG, QD
     Route: 048
     Dates: start: 20070921
  13. METOPROLOL SUCCINATE [Concomitant]
     Dosage: 50 MG, BID
     Route: 048
     Dates: start: 20070824
  14. NEXIUM [Concomitant]
     Dosage: 40 MG, QD
     Route: 048
     Dates: start: 20081124
  15. PROMETHAZINE [Concomitant]
     Indication: NAUSEA
     Dosage: 12.5 MG, Q4H PRN
     Route: 048
     Dates: start: 20090210
  16. CYCLOSPORINE [Concomitant]
     Dosage: UNK
     Dates: end: 20090214

REACTIONS (9)
  - ABDOMINAL PAIN [None]
  - ABDOMINAL PAIN UPPER [None]
  - DEEP VEIN THROMBOSIS [None]
  - DIARRHOEA [None]
  - NAUSEA [None]
  - PANCYTOPENIA [None]
  - PYREXIA [None]
  - RENAL FAILURE ACUTE [None]
  - VOMITING [None]
